FAERS Safety Report 5072787-9 (Version None)
Quarter: 2006Q3

REPORT INFORMATION
  Report Type: 
  Country: None (occurrence: None)
  Receive Date: 20060801
  Receipt Date: 20060717
  Transmission Date: 20061208
  Serious: No
  Sender: FDA-Public Use
  Company Number: CA200606006014

PATIENT
  Age: 71 Year
  Sex: Female

DRUGS (11)
  1. FORTEO [Suspect]
     Indication: OSTEOPOROSIS
     Dosage: 20 UG DAILY (1/D)
     Dates: start: 20051001, end: 20060426
  2. FORTEO [Concomitant]
  3. AMITRIPTYLINE HCL [Concomitant]
  4. NADOLOL [Concomitant]
  5. PREMARIN [Concomitant]
  6. ACETYLSALICYLIC ACID SRT [Concomitant]
  7. LIPITOR [Concomitant]
  8. CALCIUM GLUCONATE [Concomitant]
  9. TYLENOL W/ CODEINE NO. 3 [Concomitant]
  10. MULTIVIT (VITAMINS NOS) [Concomitant]
  11. OXYCONTIN [Concomitant]

REACTIONS (6)
  - DIZZINESS [None]
  - FALL [None]
  - HEAD INJURY [None]
  - SCAN ABNORMAL [None]
  - SKIN LACERATION [None]
  - VASCULAR INJURY [None]
